FAERS Safety Report 24263850 (Version 1)
Quarter: 2024Q3

REPORT INFORMATION
  Report Type: Spontaneous
  Country: US (occurrence: US)
  Receive Date: 20240829
  Receipt Date: 20240829
  Transmission Date: 20241017
  Serious: Yes (Other)
  Sender: UCB
  Company Number: US-UCBSA-2024032227

PATIENT
  Age: 27 Year
  Sex: Female

DRUGS (2)
  1. BIMZELX [Suspect]
     Active Substance: BIMEKIZUMAB-BKZX
     Indication: Psoriasis
     Dosage: 320 MILLIGRAM, EV 4 WEEKS (AT WEEKS 0,4,8,12 AND 16 AS DIRECTED)
     Route: 058
  2. DROSPIRENONE AND ETHINYLESTRADIOL TABLETS (II) [Concomitant]
     Indication: Product used for unknown indication
     Dosage: UNK

REACTIONS (13)
  - Suicidal ideation [Unknown]
  - Psoriasis [Unknown]
  - Discomfort [Unknown]
  - Rash [Unknown]
  - Pain [Unknown]
  - Injection site erythema [Recovered/Resolved]
  - Injection site warmth [Recovered/Resolved]
  - Injection site swelling [Recovered/Resolved]
  - Injection site pruritus [Recovered/Resolved]
  - Labyrinthitis [Recovered/Resolved]
  - Upper respiratory tract infection [Recovered/Resolved]
  - Depression [Unknown]
  - Loss of personal independence in daily activities [Unknown]

NARRATIVE: CASE EVENT DATE: 20240501
